FAERS Safety Report 9518906 (Version 1)
Quarter: 2013Q3

REPORT INFORMATION
  Report Type: Spontaneous
  Country: US (occurrence: None)
  Receive Date: 20130910
  Receipt Date: 20130910
  Transmission Date: 20140515
  Serious: Yes (Other)
  Sender: FDA-Public Use
  Company Number: None

PATIENT
  Age: 45 Year
  Sex: Female
  Weight: 58.97 kg

DRUGS (2)
  1. BUPROPION XL [Suspect]
     Indication: SEASONAL AFFECTIVE DISORDER
     Dosage: WELLBUTRIN XL 150MG QD ORAL
     Route: 048
     Dates: start: 20130721, end: 20130813
  2. XANAX XR [Concomitant]

REACTIONS (2)
  - Product substitution issue [None]
  - Psychiatric decompensation [None]
